FAERS Safety Report 8199411-0 (Version None)
Quarter: 2012Q1

REPORT INFORMATION
  Report Type: 
  Country: None (occurrence: None)
  Receive Date: 20120309
  Receipt Date: 20120302
  Transmission Date: 20120608
  Serious: Yes (Hospitalization, Other)
  Sender: FDA-Public Use
  Company Number: JP-B.I. PHARMACEUTICALS,INC./RIDGEFIELD-2011-BP-28147NB

PATIENT
  Sex: Female

DRUGS (7)
  1. ALENDRONATE SODIUM [Suspect]
     Indication: OSTEOPOROSIS
     Route: 048
     Dates: start: 20060406
  2. ASPIRIN [Concomitant]
     Indication: PERIPHERAL ARTERIAL OCCLUSIVE DISEASE
     Dosage: 100 MG
     Route: 048
     Dates: start: 20060413
  3. PLETAL [Concomitant]
     Indication: PERIPHERAL ARTERIAL OCCLUSIVE DISEASE
     Dosage: 200 MG
     Route: 065
     Dates: start: 20060412
  4. NAPAGELN:CREAM [Concomitant]
     Route: 065
  5. LIPITOR [Concomitant]
     Indication: HYPERLIPIDAEMIA
     Dosage: 5 MG
     Route: 048
     Dates: start: 20060515
  6. CILOSTATE [Concomitant]
     Dosage: 200 MG
     Route: 048
     Dates: start: 20060515
  7. MOBIC [Suspect]
     Indication: NECK PAIN
     Dosage: 10 MG
     Route: 048
     Dates: start: 20090407

REACTIONS (6)
  - PLATELET COUNT DECREASED [None]
  - APLASTIC ANAEMIA [None]
  - ENTEROCOLITIS [None]
  - DYSPNOEA [None]
  - DECREASED APPETITE [None]
  - ANAEMIA [None]
